FAERS Safety Report 4999570-4 (Version None)
Quarter: 2006Q2

REPORT INFORMATION
  Report Type: 
  Country: None (occurrence: None)
  Receive Date: 20060509
  Receipt Date: 20060428
  Transmission Date: 20061013
  Serious: Yes (Life-Threatening, Hospitalization)
  Sender: FDA-Public Use
  Company Number: APP200600110

PATIENT
  Age: 42 Year
  Sex: Male

DRUGS (5)
  1. FLUOROURACIL INJ [Suspect]
     Indication: GASTRIC CANCER
     Dosage: 1 IN 21 D, INTRAVENOUS; SEE IMAGE
     Route: 042
     Dates: start: 20060112
  2. FLUOROURACIL INJ [Suspect]
     Indication: GASTRIC CANCER
     Dosage: 1 IN 21 D, INTRAVENOUS; SEE IMAGE
     Route: 042
     Dates: start: 20060301
  3. CISPLATIN [Suspect]
     Indication: GASTRIC CANCER
     Dosage: 1 IN 21 D, INTRAVENOUS
     Route: 042
     Dates: start: 20060112
  4. CISPLATIN [Suspect]
     Indication: GASTRIC CANCER
     Dosage: 1 IN 21 D, INTRAVENOUS
     Route: 042
     Dates: start: 20060301
  5. VICODIN [Concomitant]

REACTIONS (1)
  - GASTROINTESTINAL PERFORATION [None]
